FAERS Safety Report 4737863-6 (Version None)
Quarter: 2005Q3

REPORT INFORMATION
  Report Type: 
  Country: None (occurrence: None)
  Receive Date: 20050805
  Receipt Date: 20050726
  Transmission Date: 20060218
  Serious: Yes (Disabling)
  Sender: FDA-Public Use
  Company Number: 2005100154

PATIENT
  Age: 3 Year
  Sex: Male

DRUGS (2)
  1. ZITHROMAX [Suspect]
     Indication: PNEUMONIA
     Dosage: 5 ML (5 ML, DAILY INTERVAL:  EVERY DAY)
     Dates: start: 20050613, end: 20050615
  2. CECLOR [Concomitant]

REACTIONS (2)
  - GAIT DISTURBANCE [None]
  - PARAESTHESIA [None]
